FAERS Safety Report 7100166-9 (Version None)
Quarter: 2010Q4

REPORT INFORMATION
  Report Type: 
  Country: None (occurrence: None)
  Receive Date: 20101112
  Receipt Date: 20100618
  Transmission Date: 20110411
  Serious: No
  Sender: FDA-Public Use
  Company Number: A0868021A

PATIENT
  Age: 51 Year
  Sex: Female
  Weight: 120.5 kg

DRUGS (3)
  1. COREG [Suspect]
     Dosage: 50MG PER DAY
  2. HUMIRA [Suspect]
     Dosage: 40MG SEE DOSAGE TEXT
  3. FLUOXETINE HYDROCHLORIDE [Concomitant]
     Indication: DEPRESSION

REACTIONS (3)
  - DERMATITIS PSORIASIFORM [None]
  - DRUG INEFFECTIVE [None]
  - PAIN [None]
